FAERS Safety Report 21738874 (Version 1)
Quarter: 2022Q4

REPORT INFORMATION
  Report Type: Spontaneous
  Country: US (occurrence: None)
  Receive Date: 20221215
  Receipt Date: 20221215
  Transmission Date: 20230113
  Serious: No
  Sender: FDA-Public Use
  Company Number: None

PATIENT
  Age: 43 Year
  Sex: Female

DRUGS (1)
  1. HUMIRA [Suspect]
     Active Substance: ADALIMUMAB

REACTIONS (4)
  - Needle issue [None]
  - Drug delivery system malfunction [None]
  - Syringe issue [None]
  - Drug dose omission by device [None]

NARRATIVE: CASE EVENT DATE: 20221113
